FAERS Safety Report 24048106 (Version 1)
Quarter: 2024Q3

REPORT INFORMATION
  Report Type: Report from Study
  Country: US (occurrence: US)
  Receive Date: 20240703
  Receipt Date: 20240703
  Transmission Date: 20241016
  Serious: Yes (Other)
  Sender: ABBVIE
  Company Number: US-ABBVIE-5729704

PATIENT
  Age: 75 Year
  Sex: Male

DRUGS (1)
  1. IMBRUVICA [Suspect]
     Active Substance: IBRUTINIB
     Indication: Chronic lymphocytic leukaemia
     Route: 048
     Dates: start: 2017

REACTIONS (9)
  - Chronic lymphocytic leukaemia [Unknown]
  - Blood creatinine increased [Unknown]
  - Platelet count decreased [Unknown]
  - Lymphadenopathy [Unknown]
  - Hypergammaglobulinaemia benign monoclonal [Unknown]
  - Haemoglobin decreased [Unknown]
  - Light chain analysis increased [Unknown]
  - Light chain analysis increased [Unknown]
  - Leukaemic infiltration renal [Unknown]

NARRATIVE: CASE EVENT DATE: 20230101
